FAERS Safety Report 6974688-5 (Version None)
Quarter: 2010Q3

REPORT INFORMATION
  Report Type: 
  Country: None (occurrence: None)
  Receive Date: 20100909
  Receipt Date: 20100909
  Transmission Date: 20110219
  Serious: No
  Sender: FDA-Public Use
  Company Number: None

PATIENT
  Age: 61 Year
  Sex: Female
  Weight: 72.5755 kg

DRUGS (2)
  1. LOVAZA [Suspect]
     Indication: BLOOD CHOLESTEROL INCREASED
     Dosage: 1 CAPSULE 4 X DAY MOUTH
     Route: 048
     Dates: start: 20100601, end: 20100701
  2. LOVAZA [Suspect]
     Indication: CARDIAC DISORDER
     Dosage: 1 CAPSULE 4 X DAY MOUTH
     Route: 048
     Dates: start: 20100601, end: 20100701

REACTIONS (5)
  - DYSGEUSIA [None]
  - ERUCTATION [None]
  - PRODUCT ODOUR ABNORMAL [None]
  - PRODUCT QUALITY ISSUE [None]
  - PRODUCT TASTE ABNORMAL [None]
